FAERS Safety Report 9031534 (Version 1)
Quarter: 2013Q1

REPORT INFORMATION
  Report Type: Spontaneous
  Country: AU (occurrence: AU)
  Receive Date: 20130124
  Receipt Date: 20130124
  Transmission Date: 20140127
  Serious: Yes (Life-Threatening)
  Sender: FDA-Public Use
  Company Number: AU-ROCHE-1182233

PATIENT
  Age: 64 Year
  Sex: Female
  Weight: 150 kg

DRUGS (11)
  1. MYCOPHENOLATE MOFETIL [Suspect]
     Indication: PRODUCT USED FOR UNKNOWN INDICATION
     Route: 048
     Dates: start: 20080725, end: 20121113
  2. MYCOPHENOLATE MOFETIL [Suspect]
     Indication: OFF LABEL USE
  3. CHOLECALCIFEROL [Concomitant]
     Route: 065
  4. GLUCOSAMINE HYDROCHLORIDE [Concomitant]
     Route: 065
  5. IRBESARTAN [Concomitant]
     Route: 065
  6. LERCANIDIPINE HYDROCHLORIDE [Concomitant]
     Route: 048
  7. NEO-B12 [Concomitant]
  8. PANTOPRAZOLE [Concomitant]
     Route: 065
  9. PERINDOPRIL [Concomitant]
     Route: 048
  10. THYROXINE SODIUM [Concomitant]
     Route: 065
  11. WARFARIN SODIUM [Concomitant]
     Route: 065

REACTIONS (3)
  - Acute coronary syndrome [Not Recovered/Not Resolved]
  - Atrial fibrillation [Not Recovered/Not Resolved]
  - Pneumonia [Not Recovered/Not Resolved]
